FAERS Safety Report 23727617 (Version 1)
Quarter: 2024Q2

REPORT INFORMATION
  Report Type: Spontaneous
  Country: IQ (occurrence: IQ)
  Receive Date: 20240410
  Receipt Date: 20240410
  Transmission Date: 20240716
  Serious: Yes (Death, Life-Threatening, Other)
  Sender: FDA-Public Use
  Company Number: IQ-BRISTOL-MYERS SQUIBB COMPANY-2024-055781

PATIENT
  Age: 40 Year
  Sex: Female

DRUGS (6)
  1. APIXABAN [Suspect]
     Active Substance: APIXABAN
     Indication: Deep vein thrombosis
     Dates: start: 202312
  2. APIXABAN [Suspect]
     Active Substance: APIXABAN
     Dates: start: 20240128, end: 20240128
  3. MEROPENEM [Concomitant]
     Active Substance: MEROPENEM
     Indication: Product used for unknown indication
     Route: 042
  4. VANCOMYCIN [Concomitant]
     Active Substance: VANCOMYCIN
     Indication: Product used for unknown indication
     Dosage: 500MG THREE TIMES DAILY FOR A WEEK
  5. CALCIUM GLUCONATE [Concomitant]
     Active Substance: CALCIUM GLUCONATE
     Indication: Product used for unknown indication
     Dosage: 1000MG THREE TIMES DAILY INTRAVENOUSLY
     Route: 042
  6. ESOMEPRAZOLE [Concomitant]
     Active Substance: ESOMEPRAZOLE
     Indication: Product used for unknown indication
     Route: 042

REACTIONS (4)
  - Mouth haemorrhage [Fatal]
  - Epistaxis [Fatal]
  - Loss of consciousness [Fatal]
  - Septic shock [Fatal]

NARRATIVE: CASE EVENT DATE: 20240129
